FAERS Safety Report 6105621-6 (Version None)
Quarter: 2009Q1

REPORT INFORMATION
  Report Type: 
  Country: None (occurrence: None)
  Receive Date: 20090304
  Receipt Date: 20090304
  Transmission Date: 20090719
  Serious: Yes (Other)
  Sender: FDA-Public Use
  Company Number: None

PATIENT
  Age: 44 Year
  Sex: Female
  Weight: 99.7913 kg

DRUGS (1)
  1. FACTIVE [Suspect]
     Indication: BRONCHITIS
     Dosage: 320 MG 1X DAILY -5 DAYS- PO
     Route: 048
     Dates: start: 20090218, end: 20090222

REACTIONS (9)
  - ABASIA [None]
  - ASTHENIA [None]
  - DYSSTASIA [None]
  - FATIGUE [None]
  - INSOMNIA [None]
  - IRRITABILITY [None]
  - NAUSEA [None]
  - RASH [None]
  - VISUAL IMPAIRMENT [None]
